FAERS Safety Report 14666268 (Version 1)
Quarter: 2018Q1

REPORT INFORMATION
  Report Type: Spontaneous
  Country: US (occurrence: US)
  Receive Date: 20180321
  Receipt Date: 20180321
  Transmission Date: 20180509
  Serious: No
  Sender: FDA-Public Use
  Company Number: US-BIOGEN-2018BI00542483

PATIENT
  Age: 60 Year
  Sex: Female

DRUGS (3)
  1. PLEGRIDY [Suspect]
     Active Substance: PEGINTERFERON BETA-1A
     Route: 058
     Dates: start: 20180221
  2. PLEGRIDY [Suspect]
     Active Substance: PEGINTERFERON BETA-1A
     Route: 058
     Dates: start: 20180307
  3. PLEGRIDY [Suspect]
     Active Substance: PEGINTERFERON BETA-1A
     Indication: MULTIPLE SCLEROSIS
     Route: 058
     Dates: start: 20180207

REACTIONS (15)
  - Injection site irritation [Not Recovered/Not Resolved]
  - Confusional state [Unknown]
  - Influenza like illness [Unknown]
  - Apathy [Unknown]
  - Injection site erythema [Not Recovered/Not Resolved]
  - Decreased appetite [Recovered/Resolved]
  - Depressed mood [Not Recovered/Not Resolved]
  - Feeling hot [Unknown]
  - Pyrexia [Recovered/Resolved]
  - Dizziness [Unknown]
  - Asthenia [Not Recovered/Not Resolved]
  - Fatigue [Unknown]
  - Somnolence [Unknown]
  - Feeling abnormal [Unknown]
  - Nausea [Recovered/Resolved]

NARRATIVE: CASE EVENT DATE: 201802
